FAERS Safety Report 6918064-X (Version None)
Quarter: 2010Q3

REPORT INFORMATION
  Report Type: 
  Country: None (occurrence: None)
  Receive Date: 20100810
  Receipt Date: 20091020
  Transmission Date: 20110219
  Serious: No
  Sender: FDA-Public Use
  Company Number: US-PFIZER INC-2009263928

PATIENT
  Sex: Male
  Weight: 79.4 kg

DRUGS (3)
  1. TOVIAZ [Suspect]
     Indication: HYPERTONIC BLADDER
     Dosage: 4 MG, 1X/DAY
     Route: 048
     Dates: start: 20090801
  2. SPIRIVA [Concomitant]
     Indication: DYSPNOEA
     Route: 055
  3. COUMADIN [Concomitant]
     Indication: THROMBOSIS PROPHYLAXIS
     Dosage: 2.5 MG, 1X/DAY
     Route: 048

REACTIONS (2)
  - INSOMNIA [None]
  - NIGHTMARE [None]
